FAERS Safety Report 21670030 (Version 3)
Quarter: 2022Q4

REPORT INFORMATION
  Report Type: Spontaneous
  Country: US (occurrence: US)
  Receive Date: 20221201
  Receipt Date: 20221211
  Transmission Date: 20230112
  Serious: Yes (Hospitalization, Other)
  Sender: FDA-Public Use
  Company Number: US-GLAXOSMITHKLINE-USCH2022GSK046690

PATIENT
  Age: 50 Year
  Sex: Male

DRUGS (4)
  1. DICLOFENAC SODIUM [Suspect]
     Active Substance: DICLOFENAC SODIUM
     Indication: Arthralgia
     Dosage: 100 MG, QD, OVER 8 MONTHS
     Route: 065
  2. LISINOPRIL [Concomitant]
     Active Substance: LISINOPRIL
     Indication: Arthralgia
     Dosage: UNK
     Route: 065
  3. HYDROCHLOROTHIAZIDE [Concomitant]
     Active Substance: HYDROCHLOROTHIAZIDE
     Indication: Arthralgia
     Dosage: UNK
     Route: 065
  4. OMEPRAZOLE [Concomitant]
     Active Substance: OMEPRAZOLE
     Indication: Arthralgia
     Dosage: UNK
     Route: 065

REACTIONS (12)
  - Lupus nephritis [Unknown]
  - Focal segmental glomerulosclerosis [Unknown]
  - Renal tubular necrosis [Unknown]
  - Glomerulonephritis membranous [Unknown]
  - Nephrotic syndrome [Unknown]
  - Renal failure [Unknown]
  - Peripheral swelling [Unknown]
  - Erythema nodosum [Unknown]
  - Inflammation [Unknown]
  - Oedema peripheral [Unknown]
  - Generalised oedema [Unknown]
  - Stasis dermatitis [Unknown]
